FAERS Safety Report 13959873 (Version 3)
Quarter: 2018Q4

REPORT INFORMATION
  Report Type: Spontaneous
  Country: NL (occurrence: NL)
  Receive Date: 20170912
  Receipt Date: 20181012
  Transmission Date: 20190204
  Serious: Yes (Other)
  Sender: FDA-Public Use
  Company Number: NL-009507513-1707NLD003801

PATIENT
  Age: 27 Year
  Sex: Female

DRUGS (2)
  1. IMPLANON [Suspect]
     Active Substance: ETONOGESTREL
     Indication: VAGINAL HAEMORRHAGE
     Dosage: 1 IMPLANT, UNK, IMPLANT WAS INSERTED IN RIGHT ARM
     Route: 058
     Dates: start: 20170703, end: 20170714
  2. IMPLANON [Suspect]
     Active Substance: ETONOGESTREL
     Dosage: 1IMPLANT, UNK
     Route: 058
     Dates: start: 20170714, end: 20170720

REACTIONS (10)
  - Implant site swelling [Recovering/Resolving]
  - Implant site infection [Recovered/Resolved]
  - Staphylococcal infection [Recovered/Resolved]
  - Complication of device insertion [Recovered/Resolved]
  - Implant site infection [Recovered/Resolved]
  - Product use in unapproved indication [Unknown]
  - Staphylococcal infection [Recovered/Resolved]
  - Implant site erythema [Unknown]
  - Implant site pain [Unknown]
  - Complication associated with device [Recovered/Resolved]

NARRATIVE: CASE EVENT DATE: 201707
